FAERS Safety Report 7445088-9 (Version None)
Quarter: 2011Q2

REPORT INFORMATION
  Report Type: 
  Country: None (occurrence: None)
  Receive Date: 20110429
  Receipt Date: 20110420
  Transmission Date: 20111010
  Serious: Yes (Hospitalization)
  Sender: FDA-Public Use
  Company Number: GB-SANOFI-AVENTIS-2011SA011658

PATIENT
  Age: 73 Year
  Sex: Male
  Weight: 88 kg

DRUGS (8)
  1. GLICLAZIDE [Concomitant]
     Route: 048
  2. OLMETEC [Concomitant]
     Route: 048
  3. WARFARIN [Concomitant]
  4. INSULIN [Concomitant]
     Dosage: DOSE:15 UNIT(S)
  5. MULTAQ [Suspect]
     Indication: ATRIAL FIBRILLATION
     Route: 048
     Dates: start: 20101129, end: 20110222
  6. OLMETEC [Concomitant]
     Indication: BLOOD PRESSURE
     Route: 048
  7. METFORMIN [Concomitant]
     Route: 048
  8. VERAPAMIL [Concomitant]
     Indication: ATRIAL FIBRILLATION
     Route: 048

REACTIONS (1)
  - HYPERTENSIVE CRISIS [None]
